FAERS Safety Report 9711059 (Version 2)
Quarter: 2013Q4

REPORT INFORMATION
  Report Type: Spontaneous
  Country: US (occurrence: US)
  Receive Date: 20131126
  Receipt Date: 20131126
  Transmission Date: 20140711
  Serious: No
  Sender: FDA-Public Use
  Company Number: US-BRISTOL-MYERS SQUIBB COMPANY-19043959

PATIENT
  Age: 76 Year
  Sex: Female
  Weight: 81.63 kg

DRUGS (4)
  1. BYDUREON [Suspect]
  2. LANTUS [Concomitant]
  3. METFORMIN [Concomitant]
  4. GLUCOPHAGE [Concomitant]

REACTIONS (6)
  - Diarrhoea [Recovered/Resolved]
  - Weight decreased [Unknown]
  - Injection site pain [Unknown]
  - Eructation [Unknown]
  - Product quality issue [Unknown]
  - Wrong technique in drug usage process [Unknown]
